FAERS Safety Report 5913634-X (Version None)
Quarter: 2008Q4

REPORT INFORMATION
  Report Type: 
  Country: None (occurrence: None)
  Receive Date: 20081009
  Receipt Date: 20081003
  Transmission Date: 20090506
  Serious: Yes (Other)
  Sender: FDA-Public Use
  Company Number: GB-ROCHE-585192

PATIENT
  Sex: Female
  Weight: 134.2 kg

DRUGS (4)
  1. ORLISTAT [Suspect]
     Indication: OBESITY
     Route: 048
     Dates: start: 20080610, end: 20080902
  2. METFORMIN HCL [Suspect]
     Route: 065
  3. LORATADINE [Concomitant]
     Route: 048
     Dates: start: 20040823
  4. OMEPRAZOLE [Concomitant]
     Indication: NAUSEA
     Route: 048
     Dates: start: 20040802

REACTIONS (2)
  - DIARRHOEA [None]
  - TYPE 2 DIABETES MELLITUS [None]
